FAERS Safety Report 10050320 (Version 1)
Quarter: 2014Q2

REPORT INFORMATION
  Report Type: Spontaneous
  Country: CA (occurrence: CA)
  Receive Date: 20140401
  Receipt Date: 20140401
  Transmission Date: 20141212
  Serious: Yes (Other)
  Sender: FDA-Public Use
  Company Number: PHHY2014CA034413

PATIENT
  Age: 59 Year
  Sex: Female
  Weight: 74.83 kg

DRUGS (1)
  1. CIPROFLOXACIN HYDROCHLORIDE [Suspect]
     Dosage: 500 MG, BID
     Route: 048

REACTIONS (11)
  - Contusion [Recovered/Resolved]
  - Dry eye [Recovered/Resolved]
  - Dysgeusia [Recovered/Resolved]
  - Emotional disorder [Recovered/Resolved]
  - Fatigue [Recovered/Resolved]
  - Nasopharyngitis [Recovered/Resolved]
  - Skin haemorrhage [Recovered/Resolved]
  - Hypoaesthesia [Recovered/Resolved]
  - Pain in extremity [Recovered/Resolved]
  - Paraesthesia [Recovered/Resolved]
  - Tremor [Recovered/Resolved]
